FAERS Safety Report 7341281-4 (Version None)
Quarter: 2011Q1

REPORT INFORMATION
  Report Type: 
  Country: None (occurrence: None)
  Receive Date: 20110309
  Receipt Date: 20110302
  Transmission Date: 20110831
  Serious: Yes (Hospitalization)
  Sender: FDA-Public Use
  Company Number: PHHY2011US15284

PATIENT
  Sex: Female

DRUGS (1)
  1. GILENYA [Suspect]
     Dosage: 1 DF, DAILY
     Route: 048
     Dates: start: 20110120, end: 20110302

REACTIONS (3)
  - HEADACHE [None]
  - VIRAL INFECTION [None]
  - CHEST DISCOMFORT [None]
